FAERS Safety Report 10169004 (Version 1)
Quarter: 2014Q2

REPORT INFORMATION
  Report Type: Spontaneous
  Country: US (occurrence: None)
  Receive Date: 20140512
  Receipt Date: 20140512
  Transmission Date: 20141212
  Serious: Yes (Other)
  Sender: FDA-Public Use
  Company Number: None

PATIENT
  Age: 18 Year
  Sex: Female
  Weight: 89.9 kg

DRUGS (6)
  1. VIMPAT [Suspect]
     Indication: EPILEPSY
     Dosage: 1 PILL, BID, ORAL
     Route: 048
     Dates: start: 20131122, end: 20140424
  2. TOPIRAMATE [Concomitant]
  3. SIMVASTATIN [Concomitant]
  4. METFORMIN [Concomitant]
  5. ORAL CONTRACEPTIVE [Concomitant]
  6. VITAMIN D 1000 UNITS [Concomitant]

REACTIONS (2)
  - Myoclonic epilepsy [None]
  - Dyskinesia [None]
